FAERS Safety Report 6358725-7 (Version None)
Quarter: 2009Q3

REPORT INFORMATION
  Report Type: 
  Country: None (occurrence: None)
  Receive Date: 20090916
  Receipt Date: 20090709
  Transmission Date: 20100115
  Serious: No
  Sender: FDA-Public Use
  Company Number: US-ABBOTT-09P-163-0584949-00

PATIENT
  Sex: Male
  Weight: 79.45 kg

DRUGS (3)
  1. TRILIPIX [Suspect]
     Indication: BLOOD TRIGLYCERIDES INCREASED
     Route: 048
     Dates: start: 20090619, end: 20090626
  2. TRILIPIX [Suspect]
     Route: 048
     Dates: start: 20090627
  3. ATENOL [Concomitant]
     Indication: HYPERTENSION
     Route: 048

REACTIONS (4)
  - DERMATITIS HERPETIFORMIS [None]
  - PRURITUS [None]
  - RASH [None]
  - RASH PUSTULAR [None]
